FAERS Safety Report 17834244 (Version 1)
Quarter: 2020Q2

REPORT INFORMATION
  Report Type: Spontaneous
  Country: US (occurrence: US)
  Receive Date: 20200528
  Receipt Date: 20200528
  Transmission Date: 20200714
  Serious: Yes (Hospitalization)
  Sender: FDA-Public Use
  Company Number: None

PATIENT
  Sex: Male
  Weight: 113 kg

DRUGS (3)
  1. IFOSFAMIDE. [Suspect]
     Active Substance: IFOSFAMIDE
  2. CISPLATIN (119875) [Suspect]
     Active Substance: CISPLATIN
  3. TAXOL [Suspect]
     Active Substance: PACLITAXEL

REACTIONS (3)
  - Urinary retention [None]
  - Acute kidney injury [None]
  - Nephropathy toxic [None]

NARRATIVE: CASE EVENT DATE: 20200523
